FAERS Safety Report 21215815 (Version 1)
Quarter: 2022Q3

REPORT INFORMATION
  Report Type: Spontaneous
  Country: US (occurrence: US)
  Receive Date: 20220816
  Receipt Date: 20220816
  Transmission Date: 20221026
  Serious: No
  Sender: FDA-Public Use
  Company Number: US-PFIZER INC-PV202200043011

PATIENT
  Age: 15 Year
  Sex: Female
  Weight: 49.887 kg

DRUGS (1)
  1. PAXLOVID [Suspect]
     Active Substance: NIRMATRELVIR\RITONAVIR
     Indication: COVID-19 treatment
     Dosage: DAY 1 DOSE 150MG NIRMATRELVIR 100MG RITONAVIR BID DAY 2-3 NORMAL DOSE

REACTIONS (5)
  - Dysgeusia [Unknown]
  - Nausea [Unknown]
  - Lethargy [Unknown]
  - Dizziness [Unknown]
  - Incorrect dose administered [Unknown]
